FAERS Safety Report 8967000 (Version 6)
Quarter: 2013Q3

REPORT INFORMATION
  Report Type: Report from Study
  Country: KR (occurrence: KR)
  Receive Date: 20121217
  Receipt Date: 20130917
  Transmission Date: 20140515
  Serious: Yes (Death, Other)
  Sender: FDA-Public Use
  Company Number: PHHY2012KR115213

PATIENT
  Age: 70 Year
  Sex: Female
  Weight: 57 kg

DRUGS (44)
  1. AFINITOR [Suspect]
     Indication: RENAL CELL CARCINOMA
     Dosage: 10 MG, DAILY
     Route: 048
     Dates: start: 20120706
  2. RAPISONE [Concomitant]
     Dosage: 3 DF, QD
     Route: 048
     Dates: start: 20120706, end: 20120801
  3. PHENIRAMINE [Concomitant]
     Dosage: 0.5 DF QD  (AMPULE)
     Route: 042
     Dates: start: 20120706, end: 20120706
  4. PHENIRAMINE [Concomitant]
     Dosage: 0.5 DF QD  (AMPULE)
     Route: 042
     Dates: start: 20120720, end: 20120720
  5. PHENIRAMINE [Concomitant]
     Dosage: 1.5 DF QD (AMPULE)
     Route: 042
     Dates: start: 20120805, end: 20120805
  6. MAGNESIUM OXIDE [Concomitant]
     Dosage: 3 DF, QD
     Route: 048
     Dates: start: 20120706, end: 20120720
  7. DIABEX [Concomitant]
     Indication: DIABETES MELLITUS
     Dosage: 1 DF, QD
     Route: 048
     Dates: start: 20120720
  8. DIABEX [Concomitant]
     Dosage: 1 DF, QD
     Route: 048
     Dates: start: 20120801, end: 20120801
  9. COUGH SYRUP [Concomitant]
     Indication: COUGH
     Dosage: 60 ML
     Dates: start: 20120720, end: 20120808
  10. COUGH SYRUP [Concomitant]
     Indication: PRODUCTIVE COUGH
  11. DICODE [Concomitant]
     Dosage: 1 DF, QD
     Route: 048
     Dates: start: 20120720, end: 20120808
  12. NESP [Concomitant]
     Indication: ANAEMIA
     Dates: start: 20120720, end: 20120720
  13. POTASSIUM PHOSPHATE [Concomitant]
     Dosage: 12 ML, QD
     Route: 042
     Dates: start: 20120729, end: 20120729
  14. POTASSIUM CHLORIDE [Concomitant]
     Dosage: 20 ML, QD
     Route: 042
     Dates: start: 20120729, end: 20120729
  15. POTASSIUM CHLORIDE [Concomitant]
     Dosage: 0.5 DF, QD
     Route: 042
     Dates: start: 20120808
  16. TRIDOL [Concomitant]
     Dosage: 1 DF, QD
     Route: 042
     Dates: start: 20120730, end: 20120730
  17. HUMULINE [Concomitant]
     Dosage: 3 IU, QD
     Route: 058
     Dates: start: 20120731, end: 20120731
  18. HUMULINE [Concomitant]
     Dosage: 20 IU, QD
     Route: 058
     Dates: start: 20120802, end: 20120804
  19. HUMULINE [Concomitant]
     Dosage: 24 IU, QD
     Route: 058
     Dates: start: 20120805, end: 20120807
  20. HUMULINE [Concomitant]
     Dosage: 10 IU, QD
     Route: 042
     Dates: start: 20120808
  21. METHASOL [Concomitant]
     Dosage: 100 MG, QD
     Route: 042
     Dates: start: 20120730
  22. K-CONTIN [Concomitant]
     Dosage: 3 DF, QD
     Route: 048
     Dates: start: 20120731, end: 20120731
  23. K-CONTIN [Concomitant]
     Dosage: 6 DF, QD
     Route: 048
     Dates: start: 20120801, end: 20120801
  24. K-CONTIN [Concomitant]
     Dosage: 3 DF, QD
     Route: 048
     Dates: start: 20120802, end: 20120802
  25. K-CONTIN [Concomitant]
     Dosage: 6 DF, QD
     Route: 048
     Dates: start: 20120803, end: 20120803
  26. K-CONTIN [Concomitant]
     Dosage: 6 DF, QD
     Route: 048
     Dates: start: 20120806, end: 20120806
  27. DIAMICRON [Concomitant]
     Indication: DIABETES MELLITUS
     Dosage: 2 DF, QD
     Route: 048
     Dates: start: 20120801, end: 20120801
  28. COTRIM [Concomitant]
     Dosage: 12 DF, QD
     Dates: start: 20120803, end: 20120807
  29. COTRIM [Concomitant]
     Dosage: 9 DF, QD
     Route: 042
     Dates: start: 20120808
  30. PHOSPHATE [Concomitant]
     Dosage: 60 MG
     Route: 048
     Dates: start: 20120803, end: 20120803
  31. TRANEXAMIC ACID [Concomitant]
     Dosage: 1 DF, QD
     Route: 042
     Dates: start: 20120805
  32. MACPERAN [Concomitant]
     Dosage: 6 DF, QD
     Route: 042
     Dates: start: 20120805, end: 20120805
  33. MEPEM [Concomitant]
     Dosage: 3 DF, QD
     Route: 042
     Dates: start: 20120806
  34. VANCOMYCIN [Concomitant]
     Dosage: 3 DF, QD
     Route: 042
     Dates: start: 20120806
  35. MORPHINE [Concomitant]
     Indication: COUGH
     Dosage: 3 DF, QD
     Route: 042
     Dates: start: 20120806, end: 20120807
  36. MORPHINE [Concomitant]
     Dosage: 5 DF, QD
     Route: 042
     Dates: start: 20120808, end: 20120808
  37. MORPHINE [Concomitant]
     Dosage: 1 DF, QD
     Route: 042
     Dates: start: 20120809
  38. DOBUMIN [Concomitant]
     Route: 042
     Dates: start: 20120807
  39. MG [Concomitant]
     Route: 042
     Dates: start: 20120807
  40. TAMIPOOL [Concomitant]
     Route: 042
     Dates: start: 20120807
  41. DENOGAN [Concomitant]
     Indication: PYREXIA
     Dosage: 0.5 DF, QD
     Route: 042
     Dates: start: 20120808, end: 20120808
  42. DENOGAN [Concomitant]
     Dosage: 1 DF, QD
     Route: 042
     Dates: start: 20120809, end: 20120809
  43. DENOGAN [Concomitant]
     Dosage: 0.5 DF, QD
     Route: 042
     Dates: start: 20120810
  44. MUCOPECT [Concomitant]
     Dosage: 1 DF, QD
     Route: 042
     Dates: start: 20120810

REACTIONS (9)
  - Pulmonary oedema [Fatal]
  - Pneumonitis [Fatal]
  - Heart rate decreased [Unknown]
  - Respiratory rate decreased [Recovered/Resolved]
  - Cough [Recovered/Resolved]
  - Productive cough [Recovered/Resolved]
  - Abdominal pain upper [Recovered/Resolved]
  - Decreased appetite [Recovered/Resolved]
  - Pyrexia [Recovered/Resolved]
